FAERS Safety Report 9511834 (Version 1)
Quarter: 2013Q3

REPORT INFORMATION
  Report Type: Spontaneous
  Country: PT (occurrence: None)
  Receive Date: 20130906
  Receipt Date: 20130906
  Transmission Date: 20140515
  Serious: Yes (Life-Threatening)
  Sender: FDA-Public Use
  Company Number: FK201304076

PATIENT
  Age: 62 Year
  Sex: Female

DRUGS (12)
  1. BLUE PATENTE V (SULPHAN BLUE) [Suspect]
     Indication: DIAGNOSTIC PROCEDURE
     Route: 058
     Dates: start: 20130117, end: 20130117
  2. MIDAZOLAM [Concomitant]
  3. MIOFLEX (SUXAMETHONIUM CHLORIDE) [Concomitant]
  4. FENTANILO LABESFAL (FENTANYL) [Concomitant]
  5. PROPOFOL 1% FRESENIUS [Concomitant]
  6. ATRACURIUM [Concomitant]
  7. PARACETAMOL [Concomitant]
  8. AMIZAL (IDEBENONE) [Concomitant]
  9. DORMONOCT (LOPRAZOLAM MESILATE) [Concomitant]
  10. SIMVASTATIN [Concomitant]
  11. OMEPRAZOLE [Concomitant]
  12. CEFAZOLINA [Suspect]
     Indication: INFECTION PROPHYLAXIS
     Route: 042
     Dates: start: 20130117, end: 20130117

REACTIONS (3)
  - Anaphylactic shock [None]
  - Rash maculo-papular [None]
  - Oropharyngeal swelling [None]
